FAERS Safety Report 5799618-3 (Version None)
Quarter: 2008Q3

REPORT INFORMATION
  Report Type: 
  Country: None (occurrence: None)
  Receive Date: 20080701
  Receipt Date: 20080701
  Transmission Date: 20090109
  Serious: Yes (Other)
  Sender: FDA-Public Use
  Company Number: None

PATIENT
  Age: 49 Year
  Sex: Female
  Weight: 56.6996 kg

DRUGS (1)
  1. ZANTAC 150 [Suspect]
     Indication: GASTROOESOPHAGEAL REFLUX DISEASE
     Dosage: ONCE A DAY 3 TIMES A WEEK
     Dates: start: 20080623

REACTIONS (2)
  - AMPHETAMINES POSITIVE [None]
  - DRUG SCREEN FALSE POSITIVE [None]
